FAERS Safety Report 4955857-2 (Version None)
Quarter: 2006Q1

REPORT INFORMATION
  Report Type: 
  Country: None (occurrence: None)
  Receive Date: 20060327
  Receipt Date: 20060327
  Transmission Date: 20060701
  Serious: Yes (Other)
  Sender: FDA-Public Use
  Company Number: None

PATIENT
  Sex: Male
  Weight: 90.7194 kg

DRUGS (14)
  1. VALSARTAN [Suspect]
     Indication: HYPERTENSION
     Dosage: 1 TAB DAILY
     Dates: start: 20050830, end: 20051107
  2. ASPIRIN [Concomitant]
  3. COLESTIPOL HCL [Concomitant]
  4. DM 10/GLUAIFENESIN [Concomitant]
  5. DOCUSATE [Concomitant]
  6. FLUNISDIDE [Concomitant]
  7. VICODIN [Concomitant]
  8. LORATADINE [Concomitant]
  9. MEDIZINE [Concomitant]
  10. METRONIDAZOLE [Concomitant]
  11. PRAZOSIN [Concomitant]
  12. PSYLLIUM SF [Concomitant]
  13. QUETIAPINE [Concomitant]
  14. RANITADINE [Concomitant]

REACTIONS (1)
  - COUGH [None]
